FAERS Safety Report 25715260 (Version 1)
Quarter: 2025Q3

REPORT INFORMATION
  Report Type: Spontaneous
  Country: US (occurrence: None)
  Receive Date: 20250821
  Receipt Date: 20250821
  Transmission Date: 20251021
  Serious: Yes (Hospitalization)
  Sender: FDA-CTU
  Company Number: None

PATIENT
  Sex: Male

DRUGS (7)
  1. LENALIDOMIDE [Suspect]
     Active Substance: LENALIDOMIDE
     Indication: Plasma cell myeloma
     Route: 048
     Dates: start: 20250730
  2. DEXAMETHASONE [Concomitant]
     Active Substance: DEXAMETHASONE
  3. HYDROCORT CRE [Concomitant]
  4. LENALIDOMIDE [Concomitant]
     Active Substance: LENALIDOMIDE
  5. MEDROL [Concomitant]
     Active Substance: METHYLPREDNISOLONE
  6. VELCADE [Concomitant]
     Active Substance: BORTEZOMIB
  7. XARELTO [Concomitant]
     Active Substance: RIVAROXABAN

REACTIONS (1)
  - Pancytopenia [None]
